FAERS Safety Report 16595502 (Version 2)
Quarter: 2019Q3

REPORT INFORMATION
  Report Type: Report from Study
  Country: None (occurrence: US)
  Receive Date: 20190719
  Receipt Date: 20190723
  Transmission Date: 20191004
  Serious: Yes (Other)
  Sender: FDA-Public Use
  Company Number: US-ABBVIE-19K-163-2857112-00

PATIENT
  Age: 68 Year
  Sex: Female

DRUGS (1)
  1. HUMIRA [Suspect]
     Active Substance: ADALIMUMAB
     Indication: PSORIASIS
     Dosage: HUMIRA PEN 6 PENS 84 DAYS
     Route: 058
     Dates: start: 2014, end: 20190715

REACTIONS (1)
  - Angle closure glaucoma [Not Recovered/Not Resolved]

NARRATIVE: CASE EVENT DATE: 201906
